FAERS Safety Report 23099697 (Version 1)
Quarter: 2023Q4

REPORT INFORMATION
  Report Type: Other
  Country: AU (occurrence: None)
  Receive Date: 20231024
  Receipt Date: 20231024
  Transmission Date: 20240110
  Serious: Yes (Other)
  Sender: FDA-Public Use
  Company Number: AU-ROCHE-3398453

PATIENT
  Sex: Male
  Weight: 70 kg

DRUGS (2)
  1. KADCYLA [Suspect]
     Active Substance: ADO-TRASTUZUMAB EMTANSINE
     Indication: Lung adenocarcinoma
     Dosage: STRENGTH: 100 MG/ML
     Route: 042
  2. KADCYLA [Suspect]
     Active Substance: ADO-TRASTUZUMAB EMTANSINE
     Indication: HER2 gene amplification
     Route: 065

REACTIONS (2)
  - Thrombocytopenia [Unknown]
  - Off label use [Unknown]
